FAERS Safety Report 22186867 (Version 2)
Quarter: 2023Q2

REPORT INFORMATION
  Report Type: Spontaneous
  Country: BR (occurrence: BR)
  Receive Date: 20230407
  Receipt Date: 20230508
  Transmission Date: 20230721
  Serious: Yes (Life-Threatening, Hospitalization, Other)
  Sender: FDA-Public Use
  Company Number: BR-PFIZER INC-202300144355

PATIENT
  Sex: Male

DRUGS (2)
  1. ALDACTONE [Suspect]
     Active Substance: SPIRONOLACTONE
     Indication: Cardiac disorder
     Dosage: UNK
  2. SPIRONOLACTONE [Suspect]
     Active Substance: SPIRONOLACTONE
     Indication: Cardiac disorder
     Dosage: UNK

REACTIONS (5)
  - Cardiac arrest [Unknown]
  - Myocardial infarction [Unknown]
  - Peripheral swelling [Unknown]
  - Dyspnoea [Unknown]
  - Swelling [Recovering/Resolving]
